FAERS Safety Report 15701791 (Version 1)
Quarter: 2018Q4

REPORT INFORMATION
  Report Type: Spontaneous
  Country: FR (occurrence: FR)
  Receive Date: 20181208
  Receipt Date: 20181208
  Transmission Date: 20190205
  Serious: Yes (Hospitalization)
  Sender: FDA-Public Use
  Company Number: FR-TEVA-2018-FR-983040

PATIENT
  Age: 85 Year
  Sex: Female
  Weight: 65 kg

DRUGS (6)
  1. PARACETAMOL [Concomitant]
     Active Substance: ACETAMINOPHEN
     Indication: ANALGESIC THERAPY
     Dosage: 3 GRAM DAILY;
     Route: 048
     Dates: end: 20171228
  2. VANCOMYCINE [Suspect]
     Active Substance: VANCOMYCIN
     Indication: DEVICE RELATED SEPSIS
     Route: 042
     Dates: start: 20171123, end: 20171204
  3. RIMACTAN 300 MG, G?LULE [Suspect]
     Active Substance: RIFAMPIN
     Indication: DEVICE RELATED SEPSIS
     Dosage: 6 DOSAGE FORMS DAILY;
     Route: 048
     Dates: start: 20171204, end: 20171228
  4. LIPANOR 100 MG, G?LULE [Concomitant]
     Indication: HYPERTRIGLYCERIDAEMIA
     Dosage: 2 DOSAGE FORMS DAILY;
     Route: 048
     Dates: end: 20171130
  5. RIFADINE [Suspect]
     Active Substance: RIFAMPIN
     Indication: DEVICE RELATED SEPSIS
     Dosage: 2 DOSAGE FORMS DAILY;
     Route: 065
     Dates: start: 20171123, end: 20171204
  6. MINOCYCLINE BASE [Suspect]
     Active Substance: MINOCYCLINE HYDROCHLORIDE
     Indication: DEVICE RELATED SEPSIS
     Dosage: 200 MILLIGRAM DAILY;
     Route: 048
     Dates: start: 20171204, end: 20171221

REACTIONS (7)
  - Nausea [Recovering/Resolving]
  - Renal impairment [Recovering/Resolving]
  - Jaundice [Recovering/Resolving]
  - Vomiting [Recovering/Resolving]
  - Decreased appetite [Recovering/Resolving]
  - Cholestasis [Recovering/Resolving]
  - Tonic clonic movements [Recovering/Resolving]

NARRATIVE: CASE EVENT DATE: 20171204
